FAERS Safety Report 4878774-5 (Version None)
Quarter: 2005Q4

REPORT INFORMATION
  Report Type: 
  Country: None (occurrence: None)
  Receive Date: 20051209
  Receipt Date: 20050930
  Transmission Date: 20060501
  Serious: Yes (Other)
  Sender: FDA-Public Use
  Company Number: USA-2003-0010600

PATIENT
  Age: 45 Year
  Sex: Male
  Weight: 95.2 kg

DRUGS (13)
  1. OXYCONTIN [Suspect]
     Indication: PAIN
     Dosage: 60 MG, BID
  2. MS CONTIN [Concomitant]
  3. MORPHINE SULFATE [Concomitant]
  4. SINGULAIR [Concomitant]
  5. PREDNISONE [Concomitant]
  6. ZANAFLEX [Concomitant]
  7. VALIUM [Concomitant]
  8. ALBUTEROL SULFATE AUTOHALER [Concomitant]
  9. CELEXA [Concomitant]
  10. WELLBUTRIN [Concomitant]
  11. AUGMENTIN '125' [Concomitant]
  12. VENTOLIN [Concomitant]
  13. SERZONE [Concomitant]

REACTIONS (49)
  - ABDOMINAL DISTENSION [None]
  - ABDOMINAL TENDERNESS [None]
  - ANOREXIA [None]
  - ANXIETY [None]
  - ARTHRALGIA [None]
  - ASTHENIA [None]
  - ASTHMA [None]
  - BACK INJURY [None]
  - BACK PAIN [None]
  - CELLULITIS [None]
  - CHEST DISCOMFORT [None]
  - CHILLS [None]
  - CONJUNCTIVITIS [None]
  - COUGH [None]
  - DEPRESSED MOOD [None]
  - DEPRESSION [None]
  - DIARRHOEA [None]
  - DIARRHOEA INFECTIOUS [None]
  - DRUG DEPENDENCE [None]
  - DRUG INEFFECTIVE [None]
  - DRUG TOLERANCE [None]
  - DRUG WITHDRAWAL SYNDROME [None]
  - DYSPNOEA EXACERBATED [None]
  - EAR PAIN [None]
  - EUSTACHIAN TUBE DYSFUNCTION [None]
  - EYE SWELLING [None]
  - FALL [None]
  - FATIGUE [None]
  - FLAT AFFECT [None]
  - HYPOKINESIA [None]
  - INCREASED UPPER AIRWAY SECRETION [None]
  - INSOMNIA [None]
  - KYPHOSIS [None]
  - MUSCLE SPASMS [None]
  - MUSCULOSKELETAL STIFFNESS [None]
  - NASAL OEDEMA [None]
  - PAIN [None]
  - PAIN IN EXTREMITY [None]
  - PHARYNGEAL ERYTHEMA [None]
  - PHARYNGOLARYNGEAL PAIN [None]
  - PLANTAR FASCIITIS [None]
  - POSTURE ABNORMAL [None]
  - PYREXIA [None]
  - RETCHING [None]
  - RHINORRHOEA [None]
  - SINUS CONGESTION [None]
  - STRESS [None]
  - TENDERNESS [None]
  - TENDONITIS [None]
